FAERS Safety Report 7311170-X (Version None)
Quarter: 2011Q1

REPORT INFORMATION
  Report Type: 
  Country: None (occurrence: None)
  Receive Date: 20110224
  Receipt Date: 20110217
  Transmission Date: 20110831
  Serious: Yes (Other)
  Sender: FDA-Public Use
  Company Number: US-PFIZER INC-2011038084

PATIENT
  Age: 74 Year
  Sex: Female

DRUGS (1)
  1. ROBITUSSIN COUGH AND COLD CF MAX [Suspect]
     Dosage: 1 DF, ONCE
     Route: 048
     Dates: start: 20110210, end: 20110210

REACTIONS (5)
  - DYSPEPSIA [None]
  - PRODUCT TAMPERING [None]
  - POISONING DELIBERATE [None]
  - DYSGEUSIA [None]
  - ABDOMINAL DISCOMFORT [None]
